FAERS Safety Report 17456603 (Version 2)
Quarter: 2020Q1

REPORT INFORMATION
  Report Type: Spontaneous
  Country: US (occurrence: US)
  Receive Date: 20200225
  Receipt Date: 20200323
  Transmission Date: 20200409
  Serious: No
  Sender: FDA-Public Use
  Company Number: US-BIOGEN-2020BI00840593

PATIENT
  Sex: Female

DRUGS (1)
  1. VUMERITY [Suspect]
     Active Substance: DIROXIMEL FUMARATE
     Indication: MULTIPLE SCLEROSIS
     Route: 065
     Dates: start: 20200123

REACTIONS (5)
  - Feeling abnormal [Unknown]
  - Hemiparesis [Unknown]
  - Impaired self-care [Unknown]
  - Joint injury [Unknown]
  - Vein disorder [Unknown]
